FAERS Safety Report 19358670 (Version 1)
Quarter: 2021Q2

REPORT INFORMATION
  Report Type: Spontaneous
  Country: JP (occurrence: JP)
  Receive Date: 20210601
  Receipt Date: 20210601
  Transmission Date: 20210717
  Serious: Yes (Other)
  Sender: FDA-Public Use
  Company Number: JP-DSJP-DSJ-2021-115826

PATIENT
  Age: 80 Year
  Sex: Male

DRUGS (2)
  1. ASPIRIN                            /00002701/ [Concomitant]
     Active Substance: ASPIRIN
     Indication: ANGINA PECTORIS
     Dosage: 100MG/DAY
     Route: 065
  2. EFIENT [Suspect]
     Active Substance: PRASUGREL HYDROCHLORIDE
     Indication: ANGINA PECTORIS
     Dosage: 3.75 MG, QD
     Route: 065

REACTIONS (2)
  - Infusion site extravasation [Unknown]
  - Vascular stent stenosis [Unknown]
